FAERS Safety Report 9149995 (Version 8)
Quarter: 2014Q3

REPORT INFORMATION
  Report Type: Spontaneous
  Country: DE (occurrence: DE)
  Receive Date: 20130308
  Receipt Date: 20140722
  Transmission Date: 20150326
  Serious: Yes (Hospitalization, Other)
  Sender: FDA-Public Use
  Company Number: PHHY2013DE022326

PATIENT
  Age: 74 Year
  Sex: Male
  Weight: 102 kg

DRUGS (10)
  1. EXFORGE [Concomitant]
     Active Substance: AMLODIPINE BESYLATE\VALSARTAN
     Indication: HYPERTENSION
     Dosage: UNK UKN, 1XDAILY
     Route: 048
     Dates: start: 2003
  2. SYREA [Suspect]
     Active Substance: HYDROXYUREA
     Indication: PAIN
     Dosage: UNK
     Dates: start: 200508, end: 201102
  3. SYREA [Suspect]
     Active Substance: HYDROXYUREA
     Indication: CHRONIC MYELOID LEUKAEMIA
  4. HORMONES NOS [Concomitant]
     Active Substance: UNSPECIFIED INGREDIENT
     Dosage: UNK UKN, UNK
     Route: 065
  5. GLIVEC [Suspect]
     Active Substance: IMATINIB MESYLATE
     Indication: CHRONIC MYELOID LEUKAEMIA
     Dosage: 400 MG, QD
     Route: 048
     Dates: start: 200508
  6. ZOMETA [Concomitant]
     Active Substance: ZOLEDRONIC ACID
     Dosage: 4 MG, MONTHLY
     Route: 042
     Dates: start: 201012, end: 201312
  7. PREDNISOLONE. [Concomitant]
     Active Substance: PREDNISOLONE
     Indication: METASTASES TO BONE
     Dosage: UNK UKN, DAILY
     Route: 048
     Dates: start: 201308
  8. LYRICA [Concomitant]
     Active Substance: PREGABALIN
     Indication: PROSTATIC SPECIFIC ANTIGEN DECREASED
     Dosage: UNK UKN, UNK
  9. ZYTIGA [Concomitant]
     Active Substance: ABIRATERONE ACETATE
     Indication: PROSTATE CANCER
     Dosage: 250 MG, QID
     Route: 048
     Dates: start: 2013
  10. ZYTIGA [Concomitant]
     Active Substance: ABIRATERONE ACETATE
     Indication: METASTASES TO BONE

REACTIONS (74)
  - Muscle spasms [Not Recovered/Not Resolved]
  - Lip blister [Unknown]
  - Abdominal pain [Unknown]
  - Hypotension [Unknown]
  - Cough [Unknown]
  - Erythema [Unknown]
  - Dry skin [Unknown]
  - Blood blister [Unknown]
  - Skin exfoliation [Not Recovered/Not Resolved]
  - Peripheral coldness [Unknown]
  - Myalgia [Not Recovered/Not Resolved]
  - Impaired healing [Not Recovered/Not Resolved]
  - Scab [Unknown]
  - Gait disturbance [Unknown]
  - Condition aggravated [Unknown]
  - Gastrointestinal disorder [Unknown]
  - Insomnia [Unknown]
  - Dyspepsia [Unknown]
  - Dry mouth [Unknown]
  - Neoplasm [Unknown]
  - Limb deformity [Unknown]
  - Hypoaesthesia [Unknown]
  - Hypoacusis [Not Recovered/Not Resolved]
  - pH body fluid abnormal [Not Recovered/Not Resolved]
  - Ear discomfort [Unknown]
  - Arthralgia [Unknown]
  - Abdominal pain upper [Unknown]
  - Headache [Unknown]
  - Vomiting [Unknown]
  - Nephrolithiasis [Unknown]
  - Finger deformity [Unknown]
  - Shoulder deformity [Unknown]
  - Thinking abnormal [Unknown]
  - Dizziness [Unknown]
  - Joint swelling [Unknown]
  - Weight decreased [Unknown]
  - Flatulence [Unknown]
  - Dry eye [Unknown]
  - Foot deformity [Unknown]
  - Suicidal ideation [Unknown]
  - Pallor [Not Recovered/Not Resolved]
  - Prostatic specific antigen increased [Unknown]
  - Paraesthesia [Unknown]
  - Nausea [Unknown]
  - White blood cell count decreased [Unknown]
  - Bone pain [Not Recovered/Not Resolved]
  - Sleep disorder [Unknown]
  - Tooth loss [Unknown]
  - Heart rate irregular [Unknown]
  - Onychoclasis [Not Recovered/Not Resolved]
  - Nail discolouration [Not Recovered/Not Resolved]
  - Musculoskeletal pain [Not Recovered/Not Resolved]
  - Fatigue [Unknown]
  - Gastrointestinal pain [Unknown]
  - Hyperhidrosis [Unknown]
  - Pain [Unknown]
  - Osteoarthritis [Unknown]
  - Chest pain [Unknown]
  - Pain in extremity [Not Recovered/Not Resolved]
  - Syncope [Unknown]
  - Asthenia [Unknown]
  - Dyspnoea [Unknown]
  - Abdominal distension [Unknown]
  - Night sweats [Unknown]
  - Malaise [Unknown]
  - Knee deformity [Unknown]
  - Elbow deformity [Unknown]
  - Pelvic neoplasm [Unknown]
  - Raynaud^s phenomenon [Unknown]
  - Pelvic pain [Not Recovered/Not Resolved]
  - Lip disorder [Unknown]
  - Feeling abnormal [Unknown]
  - Hot flush [Unknown]
  - Decreased appetite [Unknown]

NARRATIVE: CASE EVENT DATE: 2005
